FAERS Safety Report 16974399 (Version 1)
Quarter: 2019Q4

REPORT INFORMATION
  Report Type: Spontaneous
  Country: US (occurrence: US)
  Receive Date: 20190912
  Receipt Date: 20190912
  Transmission Date: 20200122
  Serious: Yes (Hospitalization)
  Sender: FDA-Public Use
  Company Number: None

PATIENT
  Age: 82 Year
  Sex: Male
  Weight: 79.8 kg

DRUGS (2)
  1. CEFTOLOZANE [Suspect]
     Active Substance: CEFTOLOZANE
     Indication: PROSTATITIS
     Route: 042
     Dates: start: 20190529, end: 20190607
  2. CEFTOLOZANE [Suspect]
     Active Substance: CEFTOLOZANE
     Indication: NECROSIS
     Route: 042
     Dates: start: 20190529, end: 20190607

REACTIONS (2)
  - Neutropenia [None]
  - Leukopenia [None]

NARRATIVE: CASE EVENT DATE: 20190605
